FAERS Safety Report 17431727 (Version 1)
Quarter: 2020Q1

REPORT INFORMATION
  Report Type: Report from Study
  Country: CA (occurrence: CA)
  Receive Date: 20200218
  Receipt Date: 20200218
  Transmission Date: 20200409
  Serious: Yes (Other)
  Sender: FDA-Public Use
  Company Number: CA-JNJFOC-20191219665

PATIENT
  Age: 35 Year
  Sex: Male
  Weight: 75.7 kg

DRUGS (1)
  1. STELARA [Suspect]
     Active Substance: USTEKINUMAB
     Indication: CROHN^S DISEASE
     Route: 058
     Dates: start: 20191016

REACTIONS (9)
  - Concussion [Unknown]
  - Anxiety [Unknown]
  - Dyspnoea [Unknown]
  - Chest pain [Unknown]
  - Depressed mood [Not Recovered/Not Resolved]
  - Abdominal pain upper [Unknown]
  - Diarrhoea haemorrhagic [Unknown]
  - General physical health deterioration [Unknown]
  - Sinusitis [Unknown]

NARRATIVE: CASE EVENT DATE: 20191210
